FAERS Safety Report 19256488 (Version 1)
Quarter: 2021Q2

REPORT INFORMATION
  Report Type: Spontaneous
  Country: CN (occurrence: CN)
  Receive Date: 20210513
  Receipt Date: 20210513
  Transmission Date: 20210717
  Serious: Yes (Other)
  Sender: FDA-Public Use
  Company Number: NVSC2021CN107783

PATIENT
  Age: 13 Year
  Sex: Male
  Weight: 45 kg

DRUGS (2)
  1. BENAZEPRIL [Suspect]
     Active Substance: BENAZEPRIL HYDROCHLORIDE
     Indication: IGA NEPHROPATHY
     Dosage: 10 MG, QD
     Route: 048
     Dates: start: 201902
  2. MIZORIBINE [Suspect]
     Active Substance: MIZORIBINE
     Indication: IGA NEPHROPATHY
     Dosage: 100 MG, QD
     Route: 048
     Dates: start: 20190529

REACTIONS (3)
  - Hyperuricaemia [Unknown]
  - Acute kidney injury [Unknown]
  - Product use in unapproved indication [Unknown]

NARRATIVE: CASE EVENT DATE: 2019
